FAERS Safety Report 5336462-5 (Version None)
Quarter: 2007Q2

REPORT INFORMATION
  Report Type: 
  Country: None (occurrence: None)
  Receive Date: 20070529
  Receipt Date: 20070524
  Transmission Date: 20071010
  Serious: Yes (Hospitalization, Disabling)
  Sender: FDA-Public Use
  Company Number: CH-BRISTOL-MYERS SQUIBB COMPANY-12877635

PATIENT
  Age: 51 Year
  Sex: Male

DRUGS (11)
  1. REYATAZ [Suspect]
     Indication: HIV INFECTION
     Route: 048
     Dates: start: 20041124, end: 20050214
  2. NEVIRAPINE [Suspect]
     Indication: HIV INFECTION
     Route: 048
     Dates: start: 20041124, end: 20050214
  3. NORVIR [Suspect]
     Route: 048
     Dates: start: 20041124, end: 20050214
  4. VIREAD [Suspect]
     Route: 048
     Dates: start: 20041124, end: 20050214
  5. LAMIVUDINE [Suspect]
     Route: 048
     Dates: start: 20041124, end: 20050214
  6. SERESTA [Concomitant]
     Indication: PERSONALITY DISORDER
     Route: 048
  7. SERESTA [Concomitant]
     Indication: AGGRESSION
     Route: 048
  8. REMERON [Concomitant]
     Indication: DEPRESSION
     Route: 048
     Dates: start: 20031105
  9. METHADONE HCL [Concomitant]
  10. LOPERAMIDE HCL [Concomitant]
     Dates: start: 20041101
  11. METOCLOPRAMIDE [Concomitant]
     Dates: start: 20041101

REACTIONS (3)
  - NEPHRITIS INTERSTITIAL [None]
  - PNEUMONIA [None]
  - RENAL FAILURE [None]
